FAERS Safety Report 18690641 (Version 3)
Quarter: 2021Q3

REPORT INFORMATION
  Report Type: Other
  Country: CA (occurrence: CA)
  Receive Date: 20210101
  Receipt Date: 20210831
  Transmission Date: 20211014
  Serious: Yes (Other)
  Sender: FDA-Public Use
  Company Number: CA-ROCHE-1949927

PATIENT
  Age: 76 Year
  Sex: Female

DRUGS (26)
  1. RITUXAN [Suspect]
     Active Substance: RITUXIMAB
     Route: 042
     Dates: start: 20170524
  2. DEXILANT [Concomitant]
     Active Substance: DEXLANSOPRAZOLE
  3. ADVAGRAF [Concomitant]
     Active Substance: TACROLIMUS
  4. CANDESARTAN. [Concomitant]
     Active Substance: CANDESARTAN
  5. FUROSEMIDE. [Concomitant]
     Active Substance: FUROSEMIDE
  6. RANITIDINE. [Concomitant]
     Active Substance: RANITIDINE
  7. SALBUTAMOL [Concomitant]
     Active Substance: ALBUTEROL
  8. COPHYLAC [Concomitant]
  9. DOMPERIDONE [Concomitant]
     Active Substance: DOMPERIDONE
  10. MAGNESIUM [Concomitant]
     Active Substance: MAGNESIUM
  11. PROFERRIN [Concomitant]
     Active Substance: IRON
  12. RITUXAN [Suspect]
     Active Substance: RITUXIMAB
     Indication: PRODUCT USED FOR UNKNOWN INDICATION
     Route: 042
     Dates: start: 20180504
  13. ACETAMINOPHEN. [Concomitant]
     Active Substance: ACETAMINOPHEN
     Route: 048
  14. SYMBICORT [Concomitant]
     Active Substance: BUDESONIDE\FORMOTEROL FUMARATE DIHYDRATE
  15. RITUXAN [Suspect]
     Active Substance: RITUXIMAB
     Indication: VASCULITIS
     Route: 042
     Dates: start: 20170607
  16. ESTRADIOL. [Concomitant]
     Active Substance: ESTRADIOL
  17. TRAZODONE [Concomitant]
     Active Substance: TRAZODONE HYDROCHLORIDE
  18. AMLODIPINE [Concomitant]
     Active Substance: AMLODIPINE BESYLATE
  19. METOPROLOL. [Concomitant]
     Active Substance: METOPROLOL
  20. SYNTHROID [Concomitant]
     Active Substance: LEVOTHYROXINE SODIUM
  21. DIPHENHYDRAMINE. [Concomitant]
     Active Substance: DIPHENHYDRAMINE
     Route: 048
     Dates: start: 20170607
  22. METHYLPREDNISOLONE. [Concomitant]
     Active Substance: METHYLPREDNISOLONE
     Route: 042
  23. QUETIAPINE. [Concomitant]
     Active Substance: QUETIAPINE
  24. TYLENOL ARTHRITIS PAIN [Concomitant]
     Active Substance: ACETAMINOPHEN
  25. ASAPHEN [Concomitant]
     Active Substance: ASPIRIN
  26. MCAL [Concomitant]

REACTIONS (27)
  - Nausea [Unknown]
  - Oxygen saturation decreased [Unknown]
  - Nervousness [Unknown]
  - Weight decreased [Unknown]
  - Off label use [Unknown]
  - Agitation [Unknown]
  - Insomnia [Unknown]
  - Blood pressure systolic increased [Unknown]
  - Cough [Not Recovered/Not Resolved]
  - Diarrhoea [Recovered/Resolved]
  - Pollakiuria [Not Recovered/Not Resolved]
  - Intentional product use issue [Unknown]
  - Blood pressure diastolic decreased [Unknown]
  - Migraine [Recovered/Resolved]
  - Pneumonia [Recovered/Resolved]
  - Nasopharyngitis [Not Recovered/Not Resolved]
  - Ear pain [Not Recovered/Not Resolved]
  - Headache [Unknown]
  - Fatigue [Recovered/Resolved]
  - Bronchitis [Recovered/Resolved]
  - Blood pressure diastolic abnormal [Unknown]
  - Vomiting [Recovered/Resolved]
  - Oropharyngeal pain [Not Recovered/Not Resolved]
  - Heart rate decreased [Unknown]
  - Pain [Not Recovered/Not Resolved]
  - Hypertension [Recovered/Resolved]
  - Blood pressure systolic abnormal [Unknown]

NARRATIVE: CASE EVENT DATE: 2018
